FAERS Safety Report 8521125-5 (Version None)
Quarter: 2012Q3

REPORT INFORMATION
  Report Type: 
  Country: None (occurrence: None)
  Receive Date: 20120719
  Receipt Date: 20120716
  Transmission Date: 20120928
  Serious: Yes (Death, Hospitalization)
  Sender: FDA-Public Use
  Company Number: US-ELI_LILLY_AND_COMPANY-US201201000436

PATIENT
  Sex: Male
  Weight: 64.399 kg

DRUGS (7)
  1. PREDNISONE [Concomitant]
     Dosage: UNK MG, UNK
  2. REMICADE [Concomitant]
     Dosage: 100 MG, OTHER
     Route: 042
  3. FORTEO [Suspect]
     Indication: OSTEOPOROSIS
     Dosage: 20 UG, QD
     Route: 058
     Dates: start: 20111218
  4. CALCIUM WITH VITAMIN D             /00944201/ [Concomitant]
     Indication: PRODUCT USED FOR UNKNOWN INDICATION
  5. NORVASC [Concomitant]
     Indication: PRODUCT USED FOR UNKNOWN INDICATION
     Dosage: 5 MG, QD
     Route: 048
  6. FORTEO [Suspect]
     Dosage: UNK, UNKNOWN
     Route: 065
  7. CYMBALTA [Suspect]
     Dosage: 30 MG, EACH EVENING
     Route: 048

REACTIONS (5)
  - HOSPITALISATION [None]
  - MALAISE [None]
  - RENAL CANCER METASTATIC [None]
  - POLYMYALGIA RHEUMATICA [None]
  - MUSCULAR WEAKNESS [None]
